FAERS Safety Report 4415743-3 (Version None)
Quarter: 2004Q2

REPORT INFORMATION
  Report Type: 
  Country: None (occurrence: None)
  Receive Date: 20040630
  Receipt Date: 20040318
  Transmission Date: 20050107
  Serious: Yes (Other)
  Sender: FDA-Public Use
  Company Number: 2004018948

PATIENT
  Sex: Female
  Weight: 113.3993 kg

DRUGS (9)
  1. ZOLOFT [Suspect]
     Indication: ANXIETY
     Dosage: 100 MG (BID), ORAL
     Route: 048
     Dates: end: 20040314
  2. ANTIHYPERTENSIVE (ANTIHYPERTENSIVES) [Concomitant]
  3. CONJUGATED ESTROGENS [Concomitant]
  4. CALCIUM (CALCIUM) [Concomitant]
  5. FISH OIL (FISH OIL) [Concomitant]
  6. ELEVATED BP [Concomitant]
  7. FLU-LIKE ILLNESS [Concomitant]
  8. FEELING UNWELL [Concomitant]
  9. WITHDRAWAL REACTION [Concomitant]

REACTIONS (11)
  - BLOOD PRESSURE INCREASED [None]
  - CRYING [None]
  - DIZZINESS [None]
  - DRUG WITHDRAWAL SYNDROME [None]
  - DYSPNOEA [None]
  - FEELING ABNORMAL [None]
  - HEADACHE [None]
  - INFLUENZA LIKE ILLNESS [None]
  - MUSCLE CRAMP [None]
  - STOMACH DISCOMFORT [None]
  - TREMOR [None]
